FAERS Safety Report 12718230 (Version 2)
Quarter: 2017Q2

REPORT INFORMATION
  Report Type: Report from Study
  Country: US (occurrence: US)
  Receive Date: 20160906
  Receipt Date: 20170626
  Transmission Date: 20170830
  Serious: Yes (Hospitalization)
  Sender: FDA-Public Use
  Company Number: PHEH2016US022464

PATIENT
  Age: 2 Year
  Sex: Male

DRUGS (3)
  1. SABRIL [Concomitant]
     Active Substance: VIGABATRIN
     Indication: PRODUCT USED FOR UNKNOWN INDICATION
     Route: 065
  2. MULTI VITAMIN [Concomitant]
     Active Substance: VITAMINS
     Indication: PRODUCT USED FOR UNKNOWN INDICATION
     Route: 065
  3. AFINITOR [Suspect]
     Active Substance: EVEROLIMUS
     Dosage: 3 MG, QD
     Route: 048
     Dates: start: 20160816

REACTIONS (5)
  - Stomatitis [Unknown]
  - Upper respiratory tract infection [Unknown]
  - Cough [Unknown]
  - Eating disorder [Unknown]
  - Ulcer [Unknown]

NARRATIVE: CASE EVENT DATE: 20160830
